FAERS Safety Report 9028936 (Version 2)
Quarter: 2013Q1

REPORT INFORMATION
  Report Type: Spontaneous
  Country: US (occurrence: US)
  Receive Date: 20130124
  Receipt Date: 20130130
  Transmission Date: 20140127
  Serious: No
  Sender: FDA-Public Use
  Company Number: US-ROXANE LABORATORIES, INC.-2013-RO-00148RO

PATIENT
  Age: 63 Year
  Sex: Female
  Weight: 86 kg

DRUGS (2)
  1. FLUTICASONE [Suspect]
     Indication: NASAL CONGESTION
     Route: 055
     Dates: start: 20130114, end: 20130114
  2. LISINIPRAL [Concomitant]
     Indication: BLOOD PRESSURE ABNORMAL
     Dates: start: 2011

REACTIONS (3)
  - Eye pruritus [Recovered/Resolved]
  - Lacrimation increased [Recovered/Resolved]
  - Eye swelling [Recovered/Resolved]
